FAERS Safety Report 9523620 (Version 3)
Quarter: 2014Q1

REPORT INFORMATION
  Report Type: Report from Study
  Country: RU (occurrence: RU)
  Receive Date: 20130913
  Receipt Date: 20140312
  Transmission Date: 20141002
  Serious: Yes (Other)
  Sender: FDA-Public Use
  Company Number: RU-ROCHE-1227304

PATIENT
  Age: 23 Year
  Sex: Female

DRUGS (1)
  1. RITUXIMAB [Suspect]
     Indication: MICROSCOPIC POLYANGIITIS
     Dosage: 4 INFUSIONS
     Route: 065

REACTIONS (3)
  - Neutropenia [Unknown]
  - Leukopenia [Recovered/Resolved]
  - Herpes zoster [Recovered/Resolved]
